FAERS Safety Report 7296279-1 (Version None)
Quarter: 2011Q1

REPORT INFORMATION
  Report Type: 
  Country: None (occurrence: None)
  Receive Date: 20110211
  Receipt Date: 20110211
  Transmission Date: 20110831
  Serious: Yes (Other)
  Sender: FDA-Public Use
  Company Number: None

PATIENT
  Sex: Male
  Weight: 81.6475 kg

DRUGS (1)
  1. HALDOL [Suspect]
     Indication: INSOMNIA
     Dosage: BEDTIME PO
     Route: 048
     Dates: start: 20110122, end: 20110128

REACTIONS (1)
  - PSYCHOTIC DISORDER [None]
